FAERS Safety Report 18390163 (Version 3)
Quarter: 2021Q1

REPORT INFORMATION
  Report Type: Spontaneous
  Country: US (occurrence: US)
  Receive Date: 20201015
  Receipt Date: 20210215
  Transmission Date: 20210419
  Serious: Yes (Other)
  Sender: FDA-Public Use
  Company Number: US-TEVA-2020-US-1837827

PATIENT
  Age: 48 Year
  Sex: Female

DRUGS (2)
  1. FENTANYL. [Suspect]
     Active Substance: FENTANYL
     Indication: PRODUCT USED FOR UNKNOWN INDICATION
     Route: 065
  2. OXYCODONE [Suspect]
     Active Substance: OXYCODONE
     Route: 065

REACTIONS (3)
  - Early retirement [Not Recovered/Not Resolved]
  - Dependence [Not Recovered/Not Resolved]
  - Impaired reasoning [Not Recovered/Not Resolved]

NARRATIVE: CASE EVENT DATE: 2004
